FAERS Safety Report 4524820-8 (Version None)
Quarter: 2004Q4

REPORT INFORMATION
  Report Type: 
  Country: None (occurrence: None)
  Receive Date: 20041209
  Receipt Date: 20041209
  Transmission Date: 20050328
  Serious: Yes (Other)
  Sender: FDA-Public Use
  Company Number: None

PATIENT
  Age: 66 Year
  Sex: Female

DRUGS (6)
  1. PHENYTOIN [Suspect]
     Indication: CONVULSION PROPHYLAXIS
     Dosage: 100MG  TID ORAL
     Route: 048
     Dates: start: 20040626, end: 20040706
  2. DIVALPROEX SODIUM [Suspect]
     Indication: CONVULSION PROPHYLAXIS
     Dosage: 250MG  TID ORAL
     Route: 048
     Dates: start: 20040707, end: 20040707
  3. ENOXAPARIN [Concomitant]
  4. DOCUSATE SODIUM [Concomitant]
  5. RANITIDINE [Concomitant]
  6. DEXAMETHASONE [Concomitant]

REACTIONS (6)
  - BRADYCARDIA [None]
  - LETHARGY [None]
  - PYREXIA [None]
  - RASH PRURITIC [None]
  - TACHYCARDIA [None]
  - URTICARIA [None]
